FAERS Safety Report 9397583 (Version 1)
Quarter: 2013Q3

REPORT INFORMATION
  Report Type: Spontaneous
  Country: US (occurrence: None)
  Receive Date: 20130711
  Receipt Date: 20130711
  Transmission Date: 20140515
  Serious: Yes (Hospitalization)
  Sender: FDA-Public Use
  Company Number: None

PATIENT
  Age: 70 Year
  Sex: Female

DRUGS (1)
  1. HUMIRA [Suspect]
     Indication: CROHN^S DISEASE
     Dosage: 40MG EOW  SQ
     Route: 058
     Dates: start: 20121101, end: 20130705

REACTIONS (3)
  - Staphylococcal infection [None]
  - Abscess limb [None]
  - Arthropod bite [None]
